FAERS Safety Report 16692537 (Version 2)
Quarter: 2019Q3

REPORT INFORMATION
  Report Type: Spontaneous
  Country: US (occurrence: US)
  Receive Date: 20190812
  Receipt Date: 20190814
  Transmission Date: 20191004
  Serious: Yes (Other)
  Sender: FDA-Public Use
  Company Number: US-PFIZER INC-2019344125

PATIENT
  Age: 68 Year
  Sex: Female
  Weight: 55 kg

DRUGS (3)
  1. SUTENT [Suspect]
     Active Substance: SUNITINIB MALATE
     Dosage: 25 MG, 1X/DAY
     Route: 048
     Dates: start: 2013
  2. SUTENT [Suspect]
     Active Substance: SUNITINIB MALATE
     Indication: RENAL CELL CARCINOMA
     Dosage: 75 MG, UNK
     Dates: start: 201011, end: 2010
  3. SUTENT [Suspect]
     Active Substance: SUNITINIB MALATE
     Dosage: 37 MG, UNK
     Dates: start: 201012

REACTIONS (6)
  - Cerebrovascular accident [Unknown]
  - Blood glucose decreased [Not Recovered/Not Resolved]
  - Tooth disorder [Recovered/Resolved]
  - Seizure [Unknown]
  - Neoplasm progression [Unknown]
  - Speech disorder [Not Recovered/Not Resolved]

NARRATIVE: CASE EVENT DATE: 2010
